FAERS Safety Report 24761811 (Version 2)
Quarter: 2025Q3

REPORT INFORMATION
  Report Type: Spontaneous
  Country: US (occurrence: US)
  Receive Date: 20241221
  Receipt Date: 20250802
  Transmission Date: 20251020
  Serious: Yes (Death, Hospitalization)
  Sender: ALEXION PHARMACEUTICALS
  Company Number: US-ASTRAZENECA-202412USA015650US

PATIENT
  Age: 73 Year
  Sex: Female

DRUGS (11)
  1. CRESTOR [Suspect]
     Active Substance: ROSUVASTATIN CALCIUM
  2. GLIPIZIDE [Suspect]
     Active Substance: GLIPIZIDE
  3. METFORMIN [Suspect]
     Active Substance: METFORMIN HYDROCHLORIDE
  4. AMLODIPINE [Suspect]
     Active Substance: AMLODIPINE BESYLATE
  5. LITHIUM [Suspect]
     Active Substance: LITHIUM
  6. LOSARTAN [Suspect]
     Active Substance: LOSARTAN
  7. CELECOXIB [Suspect]
     Active Substance: CELECOXIB
  8. PREGABALIN [Suspect]
     Active Substance: PREGABALIN
  9. SITAGLIPTIN [Suspect]
     Active Substance: SITAGLIPTIN
  10. PANTOPRAZOLE [Suspect]
     Active Substance: PANTOPRAZOLE
  11. ASPIRIN [Suspect]
     Active Substance: ASPIRIN

REACTIONS (1)
  - Toxicity to various agents [Fatal]
